FAERS Safety Report 10231993 (Version 1)
Quarter: 2014Q2

REPORT INFORMATION
  Report Type: Spontaneous
  Country: CA (occurrence: CA)
  Receive Date: 20140612
  Receipt Date: 20140612
  Transmission Date: 20141212
  Serious: Yes (Death)
  Sender: FDA-Public Use
  Company Number: CA-AMGEN-CANSP2014042351

PATIENT
  Sex: Male

DRUGS (1)
  1. SENSIPAR [Suspect]
     Indication: RENAL FAILURE CHRONIC
     Dosage: 150 MG, DAILY
     Route: 065
     Dates: start: 20081017

REACTIONS (1)
  - Death [Fatal]
